FAERS Safety Report 23246544 (Version 2)
Quarter: 2023Q4

REPORT INFORMATION
  Report Type: Spontaneous
  Country: US (occurrence: US)
  Receive Date: 20231130
  Receipt Date: 20231229
  Transmission Date: 20240110
  Serious: No
  Sender: FDA-Public Use
  Company Number: US-PFIZER INC-202300380512

PATIENT
  Age: 12 Year
  Sex: Female
  Weight: 31.75 kg

DRUGS (1)
  1. GENOTROPIN [Suspect]
     Active Substance: SOMATROPIN
     Indication: Growth hormone deficiency
     Dosage: 0.8 MG, DAILY
     Route: 058
     Dates: start: 202307

REACTIONS (5)
  - Device difficult to use [Unknown]
  - Device breakage [Unknown]
  - Device leakage [Unknown]
  - Poor quality device used [Unknown]
  - Drug dose omission by device [Unknown]

NARRATIVE: CASE EVENT DATE: 20230101
